FAERS Safety Report 7481087-9 (Version None)
Quarter: 2011Q2

REPORT INFORMATION
  Report Type: 
  Country: None (occurrence: None)
  Receive Date: 20110512
  Receipt Date: 20110512
  Transmission Date: 20111010
  Serious: Yes (Other)
  Sender: FDA-Public Use
  Company Number: None

PATIENT
  Age: 57 Year
  Sex: Female
  Weight: 52.1637 kg

DRUGS (1)
  1. DYSPORT [Suspect]
     Dosage: ONE TIME IM
     Route: 030
     Dates: start: 20110211

REACTIONS (5)
  - IMMOBILE [None]
  - PAIN [None]
  - MUSCLE SPASMS [None]
  - DYSPNOEA [None]
  - PRODUCT QUALITY ISSUE [None]
